FAERS Safety Report 15054014 (Version 3)
Quarter: 2018Q3

REPORT INFORMATION
  Report Type: Spontaneous
  Country: US (occurrence: US)
  Receive Date: 20180622
  Receipt Date: 20180731
  Transmission Date: 20181010
  Serious: Yes (Hospitalization)
  Sender: FDA-Public Use
  Company Number: US-CELGENEUS-USA-20180607036

PATIENT
  Age: 79 Year
  Sex: Male

DRUGS (2)
  1. REVLIMID [Suspect]
     Active Substance: LENALIDOMIDE
     Indication: PLASMA CELL MYELOMA
     Dosage: 20 MILLIGRAM
     Route: 048
     Dates: start: 20180316, end: 201806
  2. REVLIMID [Suspect]
     Active Substance: LENALIDOMIDE
     Indication: BONE NEOPLASM
     Dosage: 10 MILLIGRAM
     Route: 048
     Dates: start: 201807

REACTIONS (4)
  - Vomiting [Unknown]
  - Cardiac failure congestive [Unknown]
  - Diarrhoea [Recovered/Resolved]
  - Nausea [Recovered/Resolved]

NARRATIVE: CASE EVENT DATE: 2018
